FAERS Safety Report 13368333 (Version 2)
Quarter: 2017Q2

REPORT INFORMATION
  Report Type: Spontaneous
  Country: FI (occurrence: FI)
  Receive Date: 20170324
  Receipt Date: 20170512
  Transmission Date: 20170830
  Serious: Yes (Hospitalization)
  Sender: FDA-Public Use
  Company Number: PHHY2017FI034427

PATIENT
  Age: 82 Year
  Sex: Female

DRUGS (21)
  1. PARA-TABS [Concomitant]
     Active Substance: ACETAMINOPHEN
     Indication: PRODUCT USED FOR UNKNOWN INDICATION
     Dosage: 1 G, TID, REGULARLY OR AS NEEDED
     Route: 048
  2. BURANA [Concomitant]
     Active Substance: IBUPROFEN
     Indication: PRODUCT USED FOR UNKNOWN INDICATION
     Dosage: 600 MG 1 TO 2 TIMES A DAY, AS NEEDED
     Route: 065
  3. EXELON PATCH [Suspect]
     Active Substance: RIVASTIGMINE
     Dosage: 9.5 MG, QD PATCH 10 (CM2)
     Route: 062
     Dates: start: 20170308
  4. VI-SIBLIN [Concomitant]
     Active Substance: PLANTAGO OVATA LEAF
     Indication: PRODUCT USED FOR UNKNOWN INDICATION
     Dosage: 1 DF, BID
     Route: 065
  5. PEGORION [Concomitant]
     Active Substance: POLYETHYLENE GLYCOL 4000
     Indication: PRODUCT USED FOR UNKNOWN INDICATION
     Dosage: 12 G, BID
     Route: 065
     Dates: start: 2016
  6. XALATAN [Concomitant]
     Active Substance: LATANOPROST
     Indication: PRODUCT USED FOR UNKNOWN INDICATION
     Dosage: ONE DROP TO BOTH EYES IN THE EVENINGS
     Route: 047
  7. ARTELAC [Concomitant]
     Active Substance: HYPROMELLOSES
     Indication: PRODUCT USED FOR UNKNOWN INDICATION
     Dosage: TID, THREE TIMES A DAY TO BOTH EYES
     Route: 047
  8. VAGIFEM [Concomitant]
     Active Substance: ESTRADIOL
     Dosage: 10 UG ONCE WEEKLY
     Route: 065
  9. VAGIFEM [Concomitant]
     Active Substance: ESTRADIOL
     Indication: PRODUCT USED FOR UNKNOWN INDICATION
     Dosage: 10 UG, TWICE WEEKLY (ON MONDAYS AND THURSDAYS)
     Dates: start: 2016
  10. EXELON PATCH [Suspect]
     Active Substance: RIVASTIGMINE
     Indication: DEMENTIA ALZHEIMER^S TYPE
     Dosage: 4.6 MG, QD
     Route: 062
     Dates: start: 20160205, end: 201606
  11. AMLODIPIN [Concomitant]
     Active Substance: AMLODIPINE BESYLATE
     Indication: PRODUCT USED FOR UNKNOWN INDICATION
     Dosage: 5 MG, QD
     Route: 065
     Dates: start: 2016
  12. EXELON PATCH [Suspect]
     Active Substance: RIVASTIGMINE
     Dosage: 9.5 MG, QD
     Route: 062
     Dates: start: 20160628
  13. EXELON PATCH [Suspect]
     Active Substance: RIVASTIGMINE
     Dosage: 13.3 MG, QD PATCH 15 (CM2)
     Route: 062
     Dates: start: 20161109
  14. LAXOBERON [Concomitant]
     Active Substance: SODIUM PICOSULFATE
     Indication: PRODUCT USED FOR UNKNOWN INDICATION
     Dosage: 2.5 MG 1 TO 2, AS NEEDED
     Route: 065
  15. ONY TEC [Concomitant]
     Indication: DERMATOPHYTOSIS OF NAIL
     Dosage: UNK
     Route: 065
     Dates: end: 2016
  16. SOMAC [Concomitant]
     Active Substance: PANTOPRAZOLE SODIUM
     Indication: PRODUCT USED FOR UNKNOWN INDICATION
     Dosage: 40 MG IN THE MORNINGS
     Route: 048
  17. TRIMOPAN [Concomitant]
     Indication: PRODUCT USED FOR UNKNOWN INDICATION
     Dosage: 100 MG, 1X1 ILTA, IN THE EVENINGS
     Route: 065
     Dates: start: 2016
  18. TARGINIQ ER [Concomitant]
     Active Substance: NALOXONE HYDROCHLORIDE\OXYCODONE HYDROCHLORIDE
     Indication: PRODUCT USED FOR UNKNOWN INDICATION
     Dosage: 1 DF, BID
     Route: 048
     Dates: end: 2016
  19. MEMANTINE. [Suspect]
     Active Substance: MEMANTINE
     Indication: DEMENTIA ALZHEIMER^S TYPE
     Dosage: UNK
     Route: 065
     Dates: start: 20161109, end: 20161110
  20. MELATONIN [Concomitant]
     Active Substance: MELATONIN
     Indication: PRODUCT USED FOR UNKNOWN INDICATION
     Dosage: 3 MG, IN THE EVENINGS, AS NEEDED
     Route: 065
  21. OPAMOX [Concomitant]
     Active Substance: OXAZEPAM
     Indication: PRODUCT USED FOR UNKNOWN INDICATION
     Dosage: 7.5 MG 1 TO 3 TIMES A DAY, AS NEEDED
     Route: 065

REACTIONS (15)
  - C-reactive protein increased [Recovered/Resolved]
  - Fatigue [Unknown]
  - Sinus tachycardia [Recovered/Resolved]
  - Hip fracture [Recovered/Resolved]
  - Pain [Recovered/Resolved]
  - Urinary tract infection [Unknown]
  - Restlessness [Unknown]
  - Rash [Recovering/Resolving]
  - Fall [Recovered/Resolved]
  - Pseudomonas test positive [Recovered/Resolved]
  - Urine analysis abnormal [Unknown]
  - General physical health deterioration [Unknown]
  - Confusional state [Recovering/Resolving]
  - Hyponatraemia [Unknown]
  - Insomnia [Unknown]

NARRATIVE: CASE EVENT DATE: 2016
